FAERS Safety Report 11285575 (Version 3)
Quarter: 2015Q3

REPORT INFORMATION
  Report Type: Spontaneous
  Country: BR (occurrence: BR)
  Receive Date: 20150720
  Receipt Date: 20150901
  Transmission Date: 20151125
  Serious: Yes (Hospitalization, Other)
  Sender: FDA-Public Use
  Company Number: PHHY2015BR086742

PATIENT
  Age: 89 Year
  Sex: Female
  Weight: 64 kg

DRUGS (13)
  1. RIVOTRIL [Concomitant]
     Active Substance: CLONAZEPAM
     Indication: DEPRESSION
     Dosage: 18 GTT, QD
     Route: 048
     Dates: start: 201203
  2. EBIX [Concomitant]
     Active Substance: MEMANTINE HYDROCHLORIDE
     Indication: DEMENTIA ALZHEIMER^S TYPE
     Dosage: 1 DF (ONE TABLET), QD
     Route: 048
     Dates: start: 201203
  3. LEVOID [Concomitant]
     Active Substance: LEVOTHYROXINE
     Dosage: 1 DF (ONE TABLET OF LEVOID 38 MG), QD
     Route: 048
     Dates: start: 201203
  4. OMEPRAZOLE. [Concomitant]
     Active Substance: OMEPRAZOLE
     Indication: GASTRITIS
     Dosage: 1 DF (ONE TABLET), QD
     Route: 048
     Dates: start: 201203
  5. LEXAPRO [Concomitant]
     Active Substance: ESCITALOPRAM OXALATE
     Indication: DEPRESSION
     Dosage: 1 DF (ONE TABLET), QD
     Route: 048
     Dates: start: 201203
  6. SOMALGIN [Concomitant]
     Active Substance: ASPIRIN\DIHYDROXYALUMINUM AMINOACETATE ANHYDROUS\MAGNESIUM CARBONATE
     Indication: CARDIOVASCULAR EVENT PROPHYLAXIS
     Dosage: 1 DF (ONE TABLET), QD
     Route: 048
     Dates: start: 201203
  7. CLINFAR [Concomitant]
     Active Substance: SIMVASTATIN
     Indication: BLOOD CHOLESTEROL ABNORMAL
     Dosage: 1 DF (ONE TABLET), QD
     Route: 048
     Dates: start: 201203
  8. EXELON PATCH [Suspect]
     Active Substance: RIVASTIGMINE
     Indication: DEMENTIA ALZHEIMER^S TYPE
     Dosage: 4.6 MG (PATCH 9 MG/ 5 CM2), QD
     Route: 062
     Dates: end: 201209
  9. EXELON PATCH [Suspect]
     Active Substance: RIVASTIGMINE
     Dosage: 9.5 MG (PATCH 18 MG/ 10 CM2), QD
     Route: 062
     Dates: start: 201209, end: 201303
  10. EXELON PATCH [Suspect]
     Active Substance: RIVASTIGMINE
     Dosage: 13.3 MG (PATCH 27 MG/ 15 CM2 30 SIST), QD
     Route: 062
     Dates: start: 201303
  11. BETASERC [Concomitant]
     Active Substance: BETAHISTINE
     Indication: LABYRINTHITIS
     Dosage: 1 DF (ONE TABLET), QD
     Route: 048
     Dates: start: 201203
  12. LEVOID [Concomitant]
     Active Substance: LEVOTHYROXINE
     Indication: THYROID DISORDER
     Dosage: 1 DF (ONE TABLET OF LEVOID 50 MG), QD
     Route: 048
     Dates: start: 201203
  13. DEPURA [Concomitant]
     Active Substance: CHOLECALCIFEROL
     Indication: BLOOD CALCIUM ABNORMAL
     Dosage: 5 GTT, QD
     Route: 048
     Dates: start: 201203

REACTIONS (8)
  - Joint injury [Recovering/Resolving]
  - Accident [Unknown]
  - Poor peripheral circulation [Recovering/Resolving]
  - Fall [Unknown]
  - Femur fracture [Recovering/Resolving]
  - Paraesthesia [Not Recovered/Not Resolved]
  - Cardiovascular disorder [Not Recovered/Not Resolved]
  - Hypoaesthesia [Recovering/Resolving]

NARRATIVE: CASE EVENT DATE: 20140329
